FAERS Safety Report 8352866-0 (Version None)
Quarter: 2012Q2

REPORT INFORMATION
  Report Type: 
  Country: None (occurrence: None)
  Receive Date: 20120511
  Receipt Date: 20120430
  Transmission Date: 20120825
  Serious: Yes (Hospitalization)
  Sender: FDA-Public Use
  Company Number: US-ELI_LILLY_AND_COMPANY-US_001152798

PATIENT
  Sex: Female
  Weight: 63 kg

DRUGS (6)
  1. ZYPREXA [Suspect]
     Indication: BIPOLAR DISORDER
     Dosage: UNK, UNKNOWN
     Route: 048
     Dates: start: 20000601, end: 20000816
  2. ESTRADIOL [Concomitant]
     Indication: HORMONE REPLACEMENT THERAPY
     Dosage: UNK, UNKNOWN
     Route: 048
  3. ZYPREXA [Suspect]
     Dosage: UNK
     Dates: start: 20050101
  4. ZYPREXA [Suspect]
     Dosage: UNK
     Dates: start: 20070101
  5. MEDROXYPROGESTERONE [Concomitant]
     Indication: HORMONE REPLACEMENT THERAPY
     Dosage: UNK, UNKNOWN
     Route: 048
  6. AMITRIPTYLINE HCL [Concomitant]
     Indication: BIPOLAR DISORDER
     Dosage: 100 MG, EACH EVENING
     Route: 048

REACTIONS (9)
  - HEPATIC STEATOSIS [None]
  - GRANULOMATOUS LIVER DISEASE [None]
  - PYREXIA [None]
  - ASTHENIA [None]
  - GAIT DISTURBANCE [None]
  - INFLUENZA LIKE ILLNESS [None]
  - HEPATIC ENZYME INCREASED [None]
  - ROAD TRAFFIC ACCIDENT [None]
  - BLOOD TRIGLYCERIDES INCREASED [None]
